FAERS Safety Report 10475065 (Version 1)
Quarter: 2014Q3

REPORT INFORMATION
  Report Type: Spontaneous
  Country: US (occurrence: None)
  Receive Date: 20140924
  Receipt Date: 20140924
  Transmission Date: 20150326
  Serious: Yes (Hospitalization)
  Sender: FDA-Public Use
  Company Number: None

PATIENT
  Age: 76 Year
  Sex: Female
  Weight: 75.4 kg

DRUGS (25)
  1. SYNTHROID [Concomitant]
     Active Substance: LEVOTHYROXINE SODIUM
  2. MIRALAX [Concomitant]
     Active Substance: POLYETHYLENE GLYCOL 3350
  3. LANTUS [Concomitant]
     Active Substance: INSULIN GLARGINE
  4. PRAVASTATIN [Concomitant]
     Active Substance: PRAVASTATIN\PRAVASTATIN SODIUM
  5. OXYCODONE [Concomitant]
     Active Substance: OXYCODONE
  6. PLAVIX [Suspect]
     Active Substance: CLOPIDOGREL BISULFATE
     Indication: CORONARY ARTERY DISEASE
     Dosage: CHRONIC
     Route: 048
  7. ZOFRAN [Concomitant]
     Active Substance: ONDANSETRON HYDROCHLORIDE
  8. KEPPRA [Concomitant]
     Active Substance: LEVETIRACETAM
  9. LASIX [Concomitant]
     Active Substance: FUROSEMIDE
  10. ISORDIL [Concomitant]
     Active Substance: ISOSORBIDE DINITRATE
  11. LASI [Concomitant]
  12. KPHUS [Concomitant]
  13. COREG [Concomitant]
     Active Substance: CARVEDILOL
  14. LOSARTAN [Concomitant]
     Active Substance: LOSARTAN
  15. KLORCON [Concomitant]
  16. ATIVAN [Concomitant]
     Active Substance: LORAZEPAM
  17. PLAVIX [Suspect]
     Active Substance: CLOPIDOGREL BISULFATE
     Indication: CEREBROVASCULAR ACCIDENT
     Dosage: CHRONIC
     Route: 048
  18. ASA [Suspect]
     Active Substance: ASPIRIN
     Indication: CORONARY ARTERY DISEASE
     Dosage: CHRONIC
     Route: 048
  19. ASA [Suspect]
     Active Substance: ASPIRIN
     Indication: CEREBROVASCULAR ACCIDENT
     Dosage: CHRONIC
     Route: 048
  20. COUMADIN [Suspect]
     Active Substance: WARFARIN SODIUM
     Indication: DEEP VEIN THROMBOSIS
  21. DURAGESIC [Concomitant]
     Active Substance: FENTANYL
  22. PROTONIX [Concomitant]
     Active Substance: PANTOPRAZOLE SODIUM
  23. APAP [Concomitant]
     Active Substance: ACETAMINOPHEN
  24. NTG [Concomitant]
     Active Substance: NITROGLYCERIN
  25. CLONIDINE. [Concomitant]
     Active Substance: CLONIDINE

REACTIONS (2)
  - International normalised ratio increased [None]
  - Epistaxis [None]

NARRATIVE: CASE EVENT DATE: 20140512
